FAERS Safety Report 6712965-3 (Version None)
Quarter: 2010Q2

REPORT INFORMATION
  Report Type: 
  Country: None (occurrence: None)
  Receive Date: 20100506
  Receipt Date: 20100503
  Transmission Date: 20101027
  Serious: Yes (Hospitalization)
  Sender: FDA-Public Use
  Company Number: FR-BRISTOL-MYERS SQUIBB COMPANY-15087877

PATIENT
  Age: 38 Year
  Sex: Male

DRUGS (11)
  1. ABILIFY [Suspect]
     Indication: SCHIZOPHRENIA
     Route: 048
     Dates: start: 20100311, end: 20100402
  2. ABILIFY [Suspect]
     Indication: DYSTHYMIC DISORDER
     Route: 048
     Dates: start: 20100311, end: 20100402
  3. HALDOL [Suspect]
     Indication: SCHIZOPHRENIA
     Dates: end: 20100325
  4. HALDOL [Suspect]
     Indication: DYSTHYMIC DISORDER
     Dates: end: 20100325
  5. THERALENE [Suspect]
     Indication: SCHIZOPHRENIA
     Dates: start: 20100311, end: 20100402
  6. THERALENE [Suspect]
     Indication: DYSTHYMIC DISORDER
     Dates: start: 20100311, end: 20100402
  7. CLOPIXOL [Suspect]
     Indication: SCHIZOPHRENIA
     Route: 048
     Dates: start: 20010325, end: 20100402
  8. CLOPIXOL [Suspect]
     Indication: DYSTHYMIC DISORDER
     Route: 048
     Dates: start: 20010325, end: 20100402
  9. NOZINAN [Concomitant]
  10. RIVOTRIL [Concomitant]
  11. TERCIAN [Concomitant]

REACTIONS (4)
  - CYTOLYTIC HEPATITIS [None]
  - EOSINOPHILIA [None]
  - PYREXIA [None]
  - RHABDOMYOLYSIS [None]
